FAERS Safety Report 25665162 (Version 1)
Quarter: 2025Q3

REPORT INFORMATION
  Report Type: Spontaneous
  Country: GB (occurrence: None)
  Receive Date: 20250809
  Receipt Date: 20250809
  Transmission Date: 20251020
  Serious: Yes (Life-Threatening, Disabling, Other)
  Sender: FDA-CTU
  Company Number: None

PATIENT
  Age: 28 Year
  Sex: Female

DRUGS (1)
  1. VENLAFAXINE [Suspect]
     Active Substance: VENLAFAXINE HYDROCHLORIDE
     Indication: Depression

REACTIONS (19)
  - Withdrawal syndrome [None]
  - Akathisia [None]
  - Muscle twitching [None]
  - Muscle spasms [None]
  - Fear [None]
  - Suicidal ideation [None]
  - Vomiting [None]
  - Retching [None]
  - Diarrhoea [None]
  - Decreased appetite [None]
  - Nausea [None]
  - Chills [None]
  - Amnesia [None]
  - Sexual dysfunction [None]
  - Sensory loss [None]
  - Weight decreased [None]
  - Hypophagia [None]
  - Quality of life decreased [None]
  - Body temperature abnormal [None]

NARRATIVE: CASE EVENT DATE: 20210401
